FAERS Safety Report 8125407-0 (Version None)
Quarter: 2012Q1

REPORT INFORMATION
  Report Type: 
  Country: None (occurrence: None)
  Receive Date: 20120209
  Receipt Date: 20120202
  Transmission Date: 20120608
  Serious: Yes (Hospitalization, Other)
  Sender: FDA-Public Use
  Company Number: US-MERCK-1105USA02746

PATIENT
  Age: 51 Year
  Sex: Female
  Weight: 60 kg

DRUGS (18)
  1. FOSAMAX [Suspect]
     Route: 048
     Dates: start: 19980201
  2. FOSAMAX [Suspect]
     Route: 048
     Dates: start: 20000829
  3. BONIVA [Suspect]
     Indication: OSTEOPOROSIS
     Route: 048
     Dates: start: 20060801, end: 20070401
  4. FOSAMAX [Suspect]
     Route: 048
     Dates: start: 20000801, end: 20060801
  5. FOSAMAX [Suspect]
     Route: 048
     Dates: start: 19980201
  6. VITAMIN E [Concomitant]
     Route: 065
     Dates: start: 19950101
  7. PREVACID [Concomitant]
     Indication: GASTROOESOPHAGEAL REFLUX DISEASE
     Route: 065
     Dates: start: 19950101
  8. ELAVIL [Concomitant]
     Indication: FIBROMYALGIA
     Route: 048
     Dates: start: 19920101
  9. FOSAMAX [Suspect]
     Route: 048
     Dates: start: 20000801, end: 20060801
  10. FOSAMAX [Suspect]
     Route: 048
     Dates: end: 20000828
  11. FOSAMAX [Suspect]
     Indication: OSTEOPENIA
     Route: 048
     Dates: start: 19971222, end: 19980101
  12. FOSAMAX [Suspect]
     Route: 048
     Dates: start: 20000829
  13. FOSAMAX [Suspect]
     Indication: OSTEOPOROSIS
     Route: 048
     Dates: start: 19971222, end: 19980101
  14. DARVOCET-N 50 [Concomitant]
     Indication: FIBROMYALGIA
     Route: 065
     Dates: start: 19950101, end: 20100101
  15. BONIVA [Suspect]
     Route: 048
     Dates: start: 20080601, end: 20090901
  16. CALCIUM CITRATE AND VITAMIN D (UNSPECIFIED) [Concomitant]
     Route: 065
     Dates: start: 19950101
  17. FOSAMAX [Suspect]
     Route: 048
     Dates: end: 20000828
  18. CALCIUM CITRATE AND VITAMIN D (UNSPECIFIED) [Concomitant]
     Route: 065
     Dates: start: 19950101

REACTIONS (67)
  - LACERATION [None]
  - ANXIETY [None]
  - CARPAL TUNNEL SYNDROME [None]
  - TOOTH DISORDER [None]
  - LOW TURNOVER OSTEOPATHY [None]
  - INSOMNIA [None]
  - CORONARY ARTERY DISEASE [None]
  - BUNDLE BRANCH BLOCK RIGHT [None]
  - BONE PAIN [None]
  - CHEST PAIN [None]
  - CONSTIPATION [None]
  - MUSCULAR WEAKNESS [None]
  - TROPONIN INCREASED [None]
  - SPONDYLOLISTHESIS [None]
  - SPINAL COLUMN STENOSIS [None]
  - POLYNEUROPATHY CHRONIC [None]
  - TEMPERATURE INTOLERANCE [None]
  - CERVICOBRACHIAL SYNDROME [None]
  - GUILLAIN-BARRE SYNDROME [None]
  - ESCHERICHIA SEPSIS [None]
  - ESCHERICHIA URINARY TRACT INFECTION [None]
  - BUNION [None]
  - MUSCULOSKELETAL STIFFNESS [None]
  - INTERVERTEBRAL DISC PROTRUSION [None]
  - PETECHIAE [None]
  - DEPRESSION [None]
  - GASTROENTERITIS VIRAL [None]
  - FATIGUE [None]
  - BACK PAIN [None]
  - ANAEMIA [None]
  - WEIGHT INCREASED [None]
  - SINUS DISORDER [None]
  - MYALGIA [None]
  - SCIATICA [None]
  - NEUROPATHY PERIPHERAL [None]
  - JOINT DISLOCATION [None]
  - FEMUR FRACTURE [None]
  - ADRENAL INSUFFICIENCY [None]
  - BASAL CELL CARCINOMA [None]
  - SEPTIC SHOCK [None]
  - MYOFASCIAL PAIN SYNDROME [None]
  - DENTAL CARIES [None]
  - PERIPHERAL COLDNESS [None]
  - CANDIDIASIS [None]
  - ARTHROPATHY [None]
  - MYOCARDIAL INFARCTION [None]
  - ACUTE SINUSITIS [None]
  - URINARY TRACT INFECTION [None]
  - HERPES ZOSTER [None]
  - FOOT FRACTURE [None]
  - FRACTURE DELAYED UNION [None]
  - FALL [None]
  - ARTHRALGIA [None]
  - CHRONIC INFLAMMATORY DEMYELINATING POLYRADICULONEUROPATHY [None]
  - QUADRIPARESIS [None]
  - OEDEMA PERIPHERAL [None]
  - BRONCHITIS [None]
  - PERINEURIAL CYST [None]
  - HYPERLIPIDAEMIA [None]
  - RENAL DISORDER [None]
  - RHINITIS [None]
  - OBESITY [None]
  - NEUROGENIC BLADDER [None]
  - FOOT DEFORMITY [None]
  - DRUG PRESCRIBING ERROR [None]
  - OSTEOARTHRITIS [None]
  - ARTHRITIS [None]
